FAERS Safety Report 13316434 (Version 1)
Quarter: 2017Q1

REPORT INFORMATION
  Report Type: Spontaneous
  Country: US (occurrence: US)
  Receive Date: 20170310
  Receipt Date: 20170310
  Transmission Date: 20170428
  Serious: Yes (Other)
  Sender: FDA-Public Use
  Company Number: US-AUROBINDO-AUR-APL-2016-13182

PATIENT
  Age: 48 Year
  Sex: Female
  Weight: 52.16 kg

DRUGS (4)
  1. EMERGEN C [Suspect]
     Active Substance: MINERALS\VITAMINS
     Indication: VITAMIN C
     Dosage: UNK
     Dates: start: 20160928, end: 20160928
  2. ASPIRIN                            /00002701/ [Concomitant]
     Active Substance: ASPIRIN
     Indication: NASOPHARYNGITIS
  3. AMOXICILLIN+CLAVULANIC ACID FILM-COATED TABLETS [Suspect]
     Active Substance: AMOXICILLIN\CLAVULANIC ACID
     Indication: NASOPHARYNGITIS
     Dosage: 875 MG, TWO TABLETS BY MOUTH ONCE YESTERADAY
     Route: 065
     Dates: start: 20160928
  4. ASPIRIN                            /00002701/ [Concomitant]
     Active Substance: ASPIRIN
     Indication: OROPHARYNGEAL PAIN
     Dosage: TWO 325MG TABLETS BY MOUTH CHOPPED INTO A POWDER AND DISSOLVED IN TEA

REACTIONS (10)
  - Swollen tongue [Recovering/Resolving]
  - Tongue discomfort [Recovering/Resolving]
  - Anaphylactic shock [Recovering/Resolving]
  - Lip swelling [Recovering/Resolving]
  - Throat irritation [Recovering/Resolving]
  - Feeling abnormal [Recovered/Resolved with Sequelae]
  - Rash [Not Recovered/Not Resolved]
  - Loss of consciousness [Recovered/Resolved]
  - Blood pressure abnormal [Not Recovered/Not Resolved]
  - Swelling face [Recovering/Resolving]

NARRATIVE: CASE EVENT DATE: 20160928
